FAERS Safety Report 9526845 (Version 10)
Quarter: 2014Q2

REPORT INFORMATION
  Report Type: Report from Study
  Country: MX (occurrence: MX)
  Receive Date: 20130916
  Receipt Date: 20140602
  Transmission Date: 20141212
  Serious: Yes (Other)
  Sender: FDA-Public Use
  Company Number: PHHY2013MX067926

PATIENT
  Age: 58 Year
  Sex: Female
  Weight: 52 kg

DRUGS (4)
  1. EXFORGE HCT [Suspect]
     Indication: HYPERTENSION
     Dosage: 1 TABLET (320/10/12.5MG), QD (IN THE MORNING)
     Route: 048
     Dates: start: 201306
  2. EXFORGE HCT [Suspect]
     Dosage: UNK
  3. BEDOYECTA [Concomitant]
     Indication: WEIGHT INCREASED
     Dosage: 1 UKN, UNK
  4. ACETYLSALICYLIC ACID [Concomitant]
     Dosage: 1 UKN, DAILY

REACTIONS (23)
  - Fall [Unknown]
  - Joint injury [Unknown]
  - Hypothyroidism [Recovered/Resolved]
  - Gait disturbance [Not Recovered/Not Resolved]
  - Phlebitis [Not Recovered/Not Resolved]
  - Panic attack [Recovered/Resolved]
  - Heart rate increased [Recovered/Resolved]
  - Nervousness [Not Recovered/Not Resolved]
  - Contusion [Not Recovered/Not Resolved]
  - Memory impairment [Not Recovered/Not Resolved]
  - Vision blurred [Not Recovered/Not Resolved]
  - Dizziness [Recovered/Resolved]
  - Pain in extremity [Not Recovered/Not Resolved]
  - Tachycardia [Unknown]
  - Oedema peripheral [Not Recovered/Not Resolved]
  - Blood pressure decreased [Recovered/Resolved]
  - Depression [Not Recovered/Not Resolved]
  - Weight decreased [Not Recovered/Not Resolved]
  - Weight increased [Not Recovered/Not Resolved]
  - Blood pressure increased [Recovered/Resolved]
  - Malaise [Recovered/Resolved]
  - Chest pain [Recovered/Resolved]
  - Anxiety [Recovered/Resolved]
